FAERS Safety Report 23402782 (Version 3)
Quarter: 2024Q2

REPORT INFORMATION
  Report Type: Report from Study
  Country: US (occurrence: US)
  Receive Date: 20240115
  Receipt Date: 20240613
  Transmission Date: 20240716
  Serious: Yes (Other)
  Sender: FDA-Public Use
  Company Number: US-ABBVIE-5584960

PATIENT
  Age: 63 Year
  Sex: Female

DRUGS (3)
  1. HUMIRA [Suspect]
     Active Substance: ADALIMUMAB
     Indication: Colitis ulcerative
     Dosage: FORM STRENGTH: 40 MILLIGRAM?CITRATE FREE
     Route: 058
     Dates: start: 20221017
  2. HUMIRA [Suspect]
     Active Substance: ADALIMUMAB
     Dosage: FORM STRENGTH: 40 MILLIGRAM, LAST ADMIN DATE: 2022?CITRATE FREE
     Route: 058
     Dates: start: 20220915
  3. HUMIRA [Suspect]
     Active Substance: ADALIMUMAB
     Dosage: CITRATE FREE?FORM STRENGTH: 40 MILLIGRAM
     Route: 058
     Dates: start: 20221213

REACTIONS (8)
  - Biliary obstruction [Recovering/Resolving]
  - Gastrointestinal disorder [Unknown]
  - Pancreatic neoplasm [Recovering/Resolving]
  - Blood pressure abnormal [Recovered/Resolved]
  - Complication associated with device [Unknown]
  - Illness [Unknown]
  - Device leakage [Unknown]
  - Pancreatic carcinoma [Recovering/Resolving]

NARRATIVE: CASE EVENT DATE: 20221201
